FAERS Safety Report 5190150-7 (Version None)
Quarter: 2006Q4

REPORT INFORMATION
  Report Type: 
  Country: None (occurrence: None)
  Receive Date: 20061222
  Receipt Date: 20061219
  Transmission Date: 20070319
  Serious: Yes (Life-Threatening)
  Sender: FDA-Public Use
  Company Number: HR-JNJFOC-20061205323

PATIENT
  Sex: Male
  Weight: 74 kg

DRUGS (3)
  1. RISPERIDONE [Suspect]
     Indication: PSYCHOTIC DISORDER
     Route: 048
  2. SEROXAT [Concomitant]
     Route: 048
  3. LORSILAN [Concomitant]
     Route: 048

REACTIONS (13)
  - APATHY [None]
  - BLOOD PRESSURE DECREASED [None]
  - DEPRESSION [None]
  - DYSTONIA [None]
  - HUNGER [None]
  - HYPERCHOLESTEROLAEMIA [None]
  - HYPERTRIGLYCERIDAEMIA [None]
  - INITIAL INSOMNIA [None]
  - NERVOUSNESS [None]
  - PARKINSONISM [None]
  - SUICIDAL IDEATION [None]
  - TENSION [None]
  - WEIGHT INCREASED [None]
